FAERS Safety Report 4727637-4 (Version None)
Quarter: 2005Q3

REPORT INFORMATION
  Report Type: 
  Country: None (occurrence: None)
  Receive Date: 20050727
  Receipt Date: 20050727
  Transmission Date: 20060218
  Serious: Yes (Hospitalization)
  Sender: FDA-Public Use
  Company Number: None

PATIENT
  Age: 57 Year
  Sex: Male

DRUGS (9)
  1. METOPROLOL [Suspect]
     Indication: BLOOD PRESSURE MANAGEMENT
     Dosage: 25 MG PO BID
     Route: 048
     Dates: start: 20040728, end: 20050603
  2. METOPROLOL [Suspect]
     Indication: CARDIAC DISORDER
     Dosage: 25 MG PO BID
     Route: 048
     Dates: start: 20040728, end: 20050603
  3. LOPRESSOR [Concomitant]
  4. ZOCOR [Concomitant]
  5. ASPIRIN [Concomitant]
  6. PREVACID [Concomitant]
  7. ARTHROTEC [Concomitant]
  8. VITE [Concomitant]
  9. FOLIC ACID [Concomitant]

REACTIONS (3)
  - BRADYCARDIA [None]
  - CONFUSIONAL STATE [None]
  - HYPOTENSION [None]
